FAERS Safety Report 21425216 (Version 1)
Quarter: 2022Q4

REPORT INFORMATION
  Report Type: Report from Study
  Country: BR (occurrence: BR)
  Receive Date: 20221008
  Receipt Date: 20221008
  Transmission Date: 20230113
  Serious: Yes (Hospitalization, Other)
  Sender: FDA-Public Use
  Company Number: BR-NOVARTISPH-NVSC2022BR215322

PATIENT
  Sex: Male
  Weight: 88 kg

DRUGS (5)
  1. ENTRESTO [Suspect]
     Active Substance: SACUBITRIL\VALSARTAN
     Indication: Hypertension
     Dosage: 50 MG
     Route: 065
  2. ENTRESTO [Suspect]
     Active Substance: SACUBITRIL\VALSARTAN
     Dosage: 2 DOSAGE FORM, BID (STARTED 2 MONTHS AGO)
     Route: 048
  3. LOSARTAN POTASSIUM [Concomitant]
     Active Substance: LOSARTAN POTASSIUM
     Indication: Hypertension
     Dosage: 2 DOSAGE FORM, BID (START DATE WAS 20 YEARS  AGO, STOP DATE WAS 2 MONTH AGO)
     Route: 048
  4. LACTONE [Concomitant]
     Indication: Hypertension
     Dosage: 1 DOSAGE FORM, QD (START DATE WAS 5 YEARS AGO)
     Route: 048
  5. OCORON [Concomitant]
     Indication: Arrhythmia
     Dosage: 1 DOSAGE FORM, QD
     Route: 048

REACTIONS (4)
  - Cerebrovascular accident [Unknown]
  - Blood cholesterol increased [Not Recovered/Not Resolved]
  - Weight decreased [Not Recovered/Not Resolved]
  - Product use in unapproved indication [Unknown]
